FAERS Safety Report 10668248 (Version 3)
Quarter: 2015Q1

REPORT INFORMATION
  Report Type: Spontaneous
  Country: US (occurrence: US)
  Receive Date: 20141222
  Receipt Date: 20150108
  Transmission Date: 20150720
  Serious: No
  Sender: FDA-Public Use
  Company Number: US-GLAXOSMITHKLINE-A1054804A

PATIENT
  Sex: Male

DRUGS (5)
  1. AVODART [Suspect]
     Active Substance: DUTASTERIDE
     Dosage: UNK
     Dates: start: 2009
  2. UNKNOWN MEDICATION [Concomitant]
     Active Substance: UNSPECIFIED INGREDIENT
  3. AVODART [Suspect]
     Active Substance: DUTASTERIDE
     Dosage: UNK
  4. AVODART [Suspect]
     Active Substance: DUTASTERIDE
     Indication: URINARY RETENTION
     Route: 048
     Dates: start: 2009
  5. AVODART [Suspect]
     Active Substance: DUTASTERIDE
     Indication: PROSTATOMEGALY
     Dosage: UNK
     Dates: start: 2009

REACTIONS (4)
  - Urinary tract disorder [Unknown]
  - Hypertension [Unknown]
  - Drug ineffective [Unknown]
  - Product quality issue [Unknown]

NARRATIVE: CASE EVENT DATE: 201312
